FAERS Safety Report 6681783-7 (Version None)
Quarter: 2010Q2

REPORT INFORMATION
  Report Type: 
  Country: None (occurrence: None)
  Receive Date: 20100414
  Receipt Date: 20100413
  Transmission Date: 20101027
  Serious: Yes (Death)
  Sender: FDA-Public Use
  Company Number: US-ROXANE LABORATORIES, INC.-2010-RO-00154RO

PATIENT
  Sex: Female

DRUGS (2)
  1. DEXAMETHASONE [Suspect]
     Indication: BLOOD CORTISOL INCREASED
  2. DEXAMETHASONE [Suspect]
     Indication: BLOOD CORTICOTROPHIN INCREASED

REACTIONS (2)
  - BLOOD CORTISOL INCREASED [None]
  - MALIGNANT NEOPLASM OF ISLETS OF LANGERHANS [None]
